FAERS Safety Report 5962343-X (Version None)
Quarter: 2008Q4

REPORT INFORMATION
  Report Type: 
  Country: None (occurrence: None)
  Receive Date: 20081119
  Receipt Date: 20080923
  Transmission Date: 20090506
  Serious: No
  Sender: FDA-Public Use
  Company Number: WAES 0809USA04213

PATIENT
  Age: 69 Year
  Sex: Female

DRUGS (6)
  1. JANUVIA [Suspect]
     Indication: TYPE 2 DIABETES MELLITUS
     Dosage: 100 MG/DAILY/PO
     Route: 048
     Dates: start: 20080501
  2. GLUCOTROL [Concomitant]
  3. MICARDIS [Concomitant]
  4. VYTORIN [Concomitant]
  5. ATENOLOL [Concomitant]
  6. METFORMIN [Concomitant]

REACTIONS (1)
  - DYSGEUSIA [None]
